FAERS Safety Report 12880058 (Version 1)
Quarter: 2016Q4

REPORT INFORMATION
  Report Type: Spontaneous
  Country: US (occurrence: US)
  Receive Date: 20161021
  Receipt Date: 20161021
  Transmission Date: 20170207
  Serious: No
  Sender: FDA-Public Use
  Company Number: None

PATIENT
  Age: 61 Year
  Sex: Female
  Weight: 99.79 kg

DRUGS (2)
  1. VANCOMYCIN 1 GM FRESENTIUS KABI [Suspect]
     Active Substance: VANCOMYCIN
     Indication: DIABETES MELLITUS
     Route: 042
     Dates: start: 20160908, end: 20161013
  2. VANCOMYCIN 1 GM FRESENTIUS KABI [Suspect]
     Active Substance: VANCOMYCIN
     Indication: SPINAL CORD ABSCESS
     Route: 042
     Dates: start: 20160908, end: 20161013

REACTIONS (1)
  - Oedema peripheral [None]

NARRATIVE: CASE EVENT DATE: 20161011
